FAERS Safety Report 5190169-6 (Version None)
Quarter: 2006Q4

REPORT INFORMATION
  Report Type: 
  Country: None (occurrence: None)
  Receive Date: 20061222
  Receipt Date: 20060728
  Transmission Date: 20070319
  Serious: Yes (Other)
  Sender: FDA-Public Use
  Company Number: PHEH2006US09719

PATIENT
  Sex: Female

DRUGS (5)
  1. ZOMETA [Suspect]
     Indication: BREAST CANCER METASTATIC
     Dosage: 4MG QMO
     Route: 042
     Dates: start: 20021201, end: 20050801
  2. HORMONES [Concomitant]
  3. ARIMIDEX [Concomitant]
     Dosage: 1MG UNK
     Dates: start: 19990101, end: 20020101
  4. FULVESTRANT [Concomitant]
     Dates: start: 20040101, end: 20060101
  5. AROMASIN [Concomitant]
     Dates: start: 20020101, end: 20040101

REACTIONS (2)
  - JAW OPERATION [None]
  - OSTEONECROSIS [None]
